FAERS Safety Report 10098512 (Version 2)
Quarter: 2014Q2

REPORT INFORMATION
  Report Type: Report from Study
  Country: AU (occurrence: AU)
  Receive Date: 20140423
  Receipt Date: 20140512
  Transmission Date: 20141212
  Serious: Yes (Death, Hospitalization)
  Sender: FDA-Public Use
  Company Number: AU-CELGENEUS-008-50794-14041818

PATIENT
  Age: 80 Year
  Sex: Male
  Weight: 87 kg

DRUGS (4)
  1. VIDAZA [Suspect]
     Indication: MYELODYSPLASTIC SYNDROME
     Dosage: 75 MILLIGRAM/SQ. METER
     Route: 065
     Dates: start: 20130505, end: 20140321
  2. VIDAZA [Suspect]
     Route: 065
     Dates: start: 20130305, end: 20140321
  3. ELTROMBOPAG [Suspect]
     Indication: MYELODYSPLASTIC SYNDROME
     Route: 065
     Dates: start: 20130505, end: 20140327
  4. ELTROMBOPAG [Suspect]
     Route: 065
     Dates: start: 20130305, end: 20140402

REACTIONS (2)
  - Respiratory arrest [Fatal]
  - Infection [Recovered/Resolved with Sequelae]
